FAERS Safety Report 9153814 (Version 1)
Quarter: 2013Q1

REPORT INFORMATION
  Report Type: Spontaneous
  Country: IT (occurrence: None)
  Receive Date: 20130205
  Receipt Date: 20130205
  Transmission Date: 20140127
  Serious: Yes (Other)
  Sender: FDA-Public Use
  Company Number: AUR-APL-2013-01118

PATIENT
  Age: 89 Year
  Sex: Male

DRUGS (8)
  1. LEVOFLOXACIN (LEVOFLOXACIN) [Suspect]
     Indication: RESPIRATORY FAILURE
     Dosage: 1 DOSAGE PER DAY.
     Route: 048
     Dates: start: 20121220, end: 20130106
  2. CEFTRIAXONE (CEFTRIAXONE) [Concomitant]
  3. BECLOMETHASONE (BECLOMETHASONE) [Concomitant]
  4. PREDNISONE (PREDNISONE) [Concomitant]
  5. METHYLPREDNISOLONE (METHYLPREDNISOLONE) [Concomitant]
  6. ATORVASTATIN (ATORVASTATIN) [Concomitant]
  7. ENOXAPARIN (ENOXAPARIN) [Concomitant]
  8. FUROSEMIDE (FUROSEMIDE) [Concomitant]

REACTIONS (1)
  - Tendon injury [None]
